FAERS Safety Report 24729766 (Version 2)
Quarter: 2025Q1

REPORT INFORMATION
  Report Type: Spontaneous
  Country: JP (occurrence: JP)
  Receive Date: 20241213
  Receipt Date: 20250123
  Transmission Date: 20250409
  Serious: No
  Sender: VIIV
  Company Number: JP-VIIV HEALTHCARE-JP2024155136

PATIENT

DRUGS (1)
  1. TRIUMEQ [Suspect]
     Active Substance: ABACAVIR SULFATE\DOLUTEGRAVIR SODIUM\LAMIVUDINE
     Indication: HIV infection

REACTIONS (2)
  - Blood HIV RNA increased [Unknown]
  - Product dose omission in error [Unknown]
